FAERS Safety Report 4694245-3 (Version None)
Quarter: 2005Q2

REPORT INFORMATION
  Report Type: 
  Country: None (occurrence: None)
  Receive Date: 20050617
  Receipt Date: 20050617
  Transmission Date: 20051028
  Serious: Yes (Other)
  Sender: FDA-Public Use
  Company Number: None

PATIENT
  Sex: Female
  Weight: 66 kg

DRUGS (1)
  1. ARALAST [Suspect]
     Dosage: 3980 MG IV Q WEEK WEEKLY INFUSION STARTING 3/28/04
     Dates: start: 20040328

REACTIONS (2)
  - DIARRHOEA [None]
  - INFUSION RELATED REACTION [None]
